FAERS Safety Report 4352382-7 (Version None)
Quarter: 2004Q2

REPORT INFORMATION
  Report Type: 
  Country: None (occurrence: None)
  Receive Date: 20040423
  Receipt Date: 20030603
  Transmission Date: 20050107
  Serious: Yes (Disabling)
  Sender: FDA-Public Use
  Company Number: CIP03001759

PATIENT
  Sex: Female

DRUGS (1)
  1. MACROBID [Suspect]
     Dosage: 100 MG, ORAL
     Route: 048

REACTIONS (1)
  - HEPATOCELLULAR DAMAGE [None]
